FAERS Safety Report 4285842-8 (Version None)
Quarter: 2004Q1

REPORT INFORMATION
  Report Type: 
  Country: None (occurrence: None)
  Receive Date: 20040203
  Receipt Date: 20040126
  Transmission Date: 20041129
  Serious: Yes (Hospitalization, Other)
  Sender: FDA-Public Use
  Company Number: 2003187563FR

PATIENT
  Age: 17 Year
  Sex: Male
  Weight: 61 kg

DRUGS (1)
  1. GENOTONORM (SOMATROPIN) POWDER, STERILE [Suspect]
     Indication: HYPOPITUITARISM
     Dosage: 0.8 U, QD SUBCUTANEOUS
     Route: 058
     Dates: start: 20020126, end: 20031101

REACTIONS (1)
  - PAPILLARY THYROID CANCER [None]
